FAERS Safety Report 25640217 (Version 1)
Quarter: 2025Q3

REPORT INFORMATION
  Report Type: Spontaneous
  Country: US (occurrence: None)
  Receive Date: 20250804
  Receipt Date: 20250804
  Transmission Date: 20251020
  Serious: Yes (Other)
  Sender: FDA-CTU
  Company Number: None

PATIENT
  Age: 68 Year
  Sex: Male

DRUGS (1)
  1. OTEZLA [Suspect]
     Active Substance: APREMILAST
     Dosage: FREQUENCY : TWICE A DAY;?

REACTIONS (6)
  - Skin disorder [None]
  - Paraesthesia [None]
  - Paraesthesia [None]
  - Dermatitis [None]
  - Drug ineffective [None]
  - Road traffic accident [None]
